FAERS Safety Report 14407273 (Version 2)
Quarter: 2018Q1

REPORT INFORMATION
  Report Type: Spontaneous
  Country: US (occurrence: US)
  Receive Date: 20180118
  Receipt Date: 20180307
  Transmission Date: 20180509
  Serious: Yes (Other)
  Sender: FDA-Public Use
  Company Number: US-PFIZER INC-2018022449

PATIENT
  Age: 74 Year
  Sex: Female
  Weight: 72 kg

DRUGS (4)
  1. CELEBREX [Suspect]
     Active Substance: CELECOXIB
     Indication: ARTHRALGIA
  2. PREMARIN [Suspect]
     Active Substance: ESTROGENS, CONJUGATED
     Dosage: UNK
     Dates: end: 201711
  3. PREMARIN [Suspect]
     Active Substance: ESTROGENS, CONJUGATED
     Indication: HYSTERECTOMY
     Dosage: 0.625 MG, DAILY
     Route: 048
  4. CELEBREX [Suspect]
     Active Substance: CELECOXIB
     Indication: PAIN IN EXTREMITY
     Dosage: 200 MG, DAILY
     Route: 048
     Dates: start: 2008

REACTIONS (2)
  - Hypoacusis [Not Recovered/Not Resolved]
  - Sjogren^s syndrome [Not Recovered/Not Resolved]

NARRATIVE: CASE EVENT DATE: 2017
